FAERS Safety Report 6976719-5 (Version None)
Quarter: 2010Q3

REPORT INFORMATION
  Report Type: 
  Country: None (occurrence: None)
  Receive Date: 20100910
  Receipt Date: 20100906
  Transmission Date: 20110219
  Serious: Yes (Life-Threatening, Hospitalization)
  Sender: FDA-Public Use
  Company Number: JP-ELI_LILLY_AND_COMPANY-JP201009001537

PATIENT
  Age: 41 Year
  Sex: Female
  Weight: 44 kg

DRUGS (12)
  1. PEMETREXED [Suspect]
     Indication: LUNG ADENOCARCINOMA STAGE IV
     Dosage: 500 MG/M2, UNK
     Route: 042
     Dates: start: 20090810, end: 20100325
  2. PANVITAN [Concomitant]
     Dosage: 1 G, DAILY (1/D)
     Route: 048
     Dates: start: 20090731, end: 20100629
  3. METHYCOBAL [Concomitant]
     Dosage: 1 MG, UNK
     Route: 030
     Dates: start: 20090731, end: 20100325
  4. GRANISETRON /01178102/ [Concomitant]
     Dosage: UNK, UNK
     Route: 042
     Dates: start: 20090810, end: 20100325
  5. DECADRON /00016002/ [Concomitant]
     Route: 042
     Dates: start: 20090810, end: 20100325
  6. PARIET /JPN/ [Concomitant]
     Indication: GASTRIC ULCER
     Dosage: UNK, UNK
     Route: 048
  7. MUCODYNE [Concomitant]
     Dosage: UNK, UNK
     Route: 048
  8. MUCOSOLVAN [Concomitant]
     Dosage: UNK, UNK
     Route: 048
  9. RIZE [Concomitant]
     Indication: ANXIETY DISORDER
     Dosage: UNK, UNK
     Route: 048
  10. CODEINE PHOSPHATE [Concomitant]
     Route: 048
  11. ALLEGRA [Concomitant]
     Route: 048
     Dates: end: 20090814
  12. MAGMITT [Concomitant]
     Indication: CONSTIPATION
     Route: 048

REACTIONS (5)
  - CEREBRAL INFARCTION [None]
  - DISEASE PROGRESSION [None]
  - PNEUMONIA [None]
  - THROMBOPHLEBITIS [None]
  - VENA CAVA THROMBOSIS [None]
